FAERS Safety Report 8129226-0 (Version None)
Quarter: 2012Q1

REPORT INFORMATION
  Report Type: 
  Country: None (occurrence: None)
  Receive Date: 20120210
  Receipt Date: 20120208
  Transmission Date: 20120608
  Serious: Yes (Hospitalization, Other)
  Sender: FDA-Public Use
  Company Number: US-AMGEN-USASP2011023382

PATIENT
  Age: 33 Year
  Sex: Female

DRUGS (1)
  1. ENBREL [Suspect]
     Indication: PSORIASIS
     Dosage: 50 MG, 2 TIMES/WK
     Route: 058
     Dates: start: 20040101

REACTIONS (7)
  - FOETAL HEART RATE DECELERATION [None]
  - UTERINE HYPERTONUS [None]
  - THERAPEUTIC RESPONSE DECREASED [None]
  - CAESAREAN SECTION [None]
  - PSORIASIS [None]
  - OLIGOHYDRAMNIOS [None]
  - SUPPRESSED LACTATION [None]
